FAERS Safety Report 7940463-8 (Version None)
Quarter: 2011Q4

REPORT INFORMATION
  Report Type: 
  Country: None (occurrence: None)
  Receive Date: 20111128
  Receipt Date: 20111122
  Transmission Date: 20120403
  Serious: No
  Sender: FDA-Public Use
  Company Number: US-PFIZER INC-2011286837

PATIENT
  Sex: Female

DRUGS (4)
  1. PROCARDIA [Suspect]
     Dosage: UNK
  2. HYDROCHLOROTHIAZIDE [Suspect]
     Dosage: UNK
  3. AMLODIPINE BESYLATE [Suspect]
     Dosage: UNK
  4. BENAZEPRIL HYDROCHLORIDE [Suspect]
     Dosage: UNK

REACTIONS (3)
  - PRURITUS [None]
  - HYPERSENSITIVITY [None]
  - RASH [None]
